FAERS Safety Report 20687499 (Version 1)
Quarter: 2022Q2

REPORT INFORMATION
  Report Type: Other
  Country: AU (occurrence: None)
  Receive Date: 20220408
  Receipt Date: 20220408
  Transmission Date: 20220720
  Serious: Yes (Other)
  Sender: FDA-Public Use
  Company Number: AU-ROCHE-3060218

PATIENT
  Age: 64 Year
  Sex: Female

DRUGS (5)
  1. OCRELIZUMAB [Suspect]
     Active Substance: OCRELIZUMAB
     Indication: Multiple sclerosis
     Route: 042
     Dates: start: 20220323, end: 20220323
  2. CHOLECALCIFEROL [Concomitant]
     Active Substance: CHOLECALCIFEROL
  3. AMITRIPTYLINE HYDROCHLORIDE [Concomitant]
     Active Substance: AMITRIPTYLINE HYDROCHLORIDE
  4. BACLOFEN [Concomitant]
     Active Substance: BACLOFEN
  5. SIMVASTATIN [Concomitant]
     Active Substance: SIMVASTATIN

REACTIONS (3)
  - Progressive multiple sclerosis [Not Recovered/Not Resolved]
  - Mobility decreased [Unknown]
  - Drug ineffective [Unknown]

NARRATIVE: CASE EVENT DATE: 20220323
